FAERS Safety Report 9520063 (Version 1)
Quarter: 2013Q1

REPORT INFORMATION
  Report Type: Spontaneous
  Country: US (occurrence: None)
  Receive Date: 20130305
  Receipt Date: 20130305
  Transmission Date: 20140127
  Serious: Yes (Hospitalization, Other)
  Sender: FDA-Public Use
  Company Number: 163-21880-12073268

PATIENT
  Age: 59 Year
  Sex: Male

DRUGS (11)
  1. REVLIMID [Suspect]
     Indication: PLASMA CELL MYELOMA
     Route: 048
     Dates: start: 20120402, end: 20120725
  2. ACETAMINOPHEN\HYDROCODONE BITARTRATE [Concomitant]
  3. NEURONTIN (GABAPENTIN) [Concomitant]
  4. AMBIEN (ZOLPIDEM TARTRATE) [Concomitant]
  5. NORVASC (AMLODIPINE BESILATE) [Concomitant]
  6. TENORMIN (ATENOLOL) [Concomitant]
  7. LIPITOR (ATORVASTATIN) [Concomitant]
  8. FLEXERIL (CYCLOBENZAPRINE HYDROCHLORIDE) [Concomitant]
  9. ZOFRAN (ONDANSETRON HYDROCHLORIDE) [Concomitant]
  10. LEVEMIR/HUMALOG (INSULIN DETEMIR) [Concomitant]
  11. DECADRON (DEXAMETHASONE) [Concomitant]

REACTIONS (2)
  - Asthenia [None]
  - Drug dose omission [None]
